FAERS Safety Report 6329670-8 (Version None)
Quarter: 2009Q3

REPORT INFORMATION
  Report Type: 
  Country: None (occurrence: None)
  Receive Date: 20090826
  Receipt Date: 20090819
  Transmission Date: 20100115
  Serious: Yes (Death, Other)
  Sender: FDA-Public Use
  Company Number: GB-SANOFI-SYNTHELABO-A01200907764

PATIENT
  Sex: Female
  Weight: 65 kg

DRUGS (8)
  1. PLAVIX [Suspect]
     Indication: THROMBOSIS PROPHYLAXIS
     Dosage: UNK
     Route: 048
     Dates: start: 20090604, end: 20090720
  2. PLAVIX [Suspect]
     Indication: MYOCARDIAL INFARCTION
     Dosage: UNK
     Route: 048
     Dates: start: 20090604, end: 20090720
  3. PLAVIX [Suspect]
     Indication: MYOCARDIAL ISCHAEMIA
     Dosage: UNK
     Route: 048
     Dates: start: 20090604, end: 20090720
  4. LEVOTHYROXINE SODIUM [Concomitant]
     Indication: HYPOTHYROIDISM
     Route: 065
     Dates: start: 19910101
  5. NICORANDIL [Concomitant]
     Indication: MYOCARDIAL ISCHAEMIA
     Route: 048
     Dates: start: 20030101
  6. ASPIRIN [Concomitant]
     Indication: MYOCARDIAL ISCHAEMIA
     Dosage: UNK
     Route: 048
     Dates: start: 20030101
  7. ZOPICLONE [Concomitant]
     Indication: ANXIETY
     Route: 048
  8. LORAZEPAM [Concomitant]
     Indication: ANXIETY
     Dosage: UNK
     Route: 048
     Dates: start: 19900101

REACTIONS (8)
  - DECREASED APPETITE [None]
  - DRUG INEFFECTIVE [None]
  - GINGIVAL PAIN [None]
  - HYPOTENSION [None]
  - PERIPHERAL VASCULAR DISORDER [None]
  - SEPSIS [None]
  - VOMITING [None]
  - WEIGHT DECREASED [None]
